FAERS Safety Report 6897749-8 (Version None)
Quarter: 2010Q3

REPORT INFORMATION
  Report Type: 
  Country: None (occurrence: None)
  Receive Date: 20100802
  Receipt Date: 20070723
  Transmission Date: 20110219
  Serious: No
  Sender: FDA-Public Use
  Company Number: US-PFIZER INC-2007033206

PATIENT
  Sex: Female
  Weight: 72.7 kg

DRUGS (4)
  1. LYRICA [Suspect]
     Indication: NERVE INJURY
     Dates: start: 20060101
  2. OXYCONTIN [Suspect]
  3. DRUG, UNSPECIFIED [Suspect]
  4. MUSCLE RELAXANTS [Concomitant]

REACTIONS (2)
  - DENTAL CARIES [None]
  - DRY MOUTH [None]
